FAERS Safety Report 6470368-3 (Version None)
Quarter: 2009Q4

REPORT INFORMATION
  Report Type: 
  Country: None (occurrence: None)
  Receive Date: 20091203
  Receipt Date: 20091118
  Transmission Date: 20100525
  Serious: Yes (Death, Life-Threatening, Other)
  Sender: FDA-Public Use
  Company Number: JP-PFIZER INC-2009287699

PATIENT
  Age: 57 Year
  Sex: Male
  Weight: 56 kg

DRUGS (7)
  1. CAMPTOSAR [Suspect]
     Indication: COLON CANCER
     Dosage: 240 MG, UNK
     Route: 041
     Dates: start: 20090929, end: 20090929
  2. FLUOROURACIL [Suspect]
     Indication: COLON CANCER
     Dosage: 640 MG, UNK
     Route: 040
     Dates: start: 20090929, end: 20090929
  3. FLUOROURACIL [Suspect]
     Dosage: 3840 MG, UNK
     Route: 041
     Dates: start: 20090929, end: 20090929
  4. CALCIUM LEVOFOLINATE [Concomitant]
     Indication: COLON CANCER
     Dosage: 320 MG, UNK
     Route: 041
     Dates: start: 20090929, end: 20090929
  5. ERBITUX [Concomitant]
     Indication: COLON CANCER
     Dosage: 640MG, UNK
     Route: 041
     Dates: start: 20090929, end: 20090929
  6. KYTRIL [Concomitant]
     Indication: PREMEDICATION
     Dosage: 3 MG, UNK
     Route: 041
     Dates: start: 20090929, end: 20090929
  7. DECADRON #1 [Concomitant]
     Indication: PREMEDICATION
     Dosage: 4 MG, UNK
     Route: 041
     Dates: start: 20090929, end: 20090929

REACTIONS (5)
  - DIARRHOEA [None]
  - HEPATIC FUNCTION ABNORMAL [None]
  - HYPERKALAEMIA [None]
  - MALAISE [None]
  - PANCYTOPENIA [None]
